FAERS Safety Report 5598691-5 (Version None)
Quarter: 2007Q4

REPORT INFORMATION
  Report Type: 
  Country: None (occurrence: None)
  Receive Date: 20071226
  Receipt Date: 20071030
  Transmission Date: 20080405
  Serious: No
  Sender: FDA-Public Use
  Company Number: 2007PV033647

PATIENT
  Age: 61 Year
  Sex: Male
  Weight: 129.2752 kg

DRUGS (4)
  1. SYMLIN [Suspect]
     Indication: TYPE 2 DIABETES MELLITUS
     Dosage: 120, 60 MCG, TID, SC
     Route: 058
     Dates: start: 20071001, end: 20071001
  2. SYMLIN [Suspect]
     Indication: TYPE 2 DIABETES MELLITUS
     Dosage: 120, 60 MCG, TID, SC
     Route: 058
     Dates: start: 20071001
  3. INSULIN U-500 [Concomitant]
  4. HUMULIN N [Concomitant]

REACTIONS (2)
  - CHILLS [None]
  - NAUSEA [None]
